FAERS Safety Report 10501893 (Version 2)
Quarter: 2015Q4

REPORT INFORMATION
  Report Type: Report from Study
  Country: DK (occurrence: DK)
  Receive Date: 20141007
  Receipt Date: 20151230
  Transmission Date: 20160304
  Serious: Yes (Other)
  Sender: FDA-Public Use
  Company Number: DK-ASTELLAS-2014US014148

PATIENT

DRUGS (7)
  1. CETUXIMAB [Suspect]
     Active Substance: CETUXIMAB
     Route: 042
  2. ERLOTINIB [Suspect]
     Active Substance: ERLOTINIB
     Indication: METASTATIC NEOPLASM
     Route: 048
  3. RO 5479599 (ANTI-HER 3 MAB) [Suspect]
     Active Substance: LUMRETUZUMAB
     Route: 042
  4. RO 5479599 (ANTI-HER 3 MAB) [Suspect]
     Active Substance: LUMRETUZUMAB
     Route: 042
  5. RO 5479599 (ANTI-HER 3 MAB) [Suspect]
     Active Substance: LUMRETUZUMAB
     Indication: METASTATIC NEOPLASM
     Route: 042
  6. RO 5479599 (ANTI-HER 3 MAB) [Suspect]
     Active Substance: LUMRETUZUMAB
     Route: 042
  7. CETUXIMAB [Suspect]
     Active Substance: CETUXIMAB
     Indication: METASTATIC NEOPLASM
     Route: 042

REACTIONS (1)
  - Hypokalaemia [Unknown]
